FAERS Safety Report 11786291 (Version 1)
Quarter: 2015Q4

REPORT INFORMATION
  Report Type: Spontaneous
  Country: HU (occurrence: HU)
  Receive Date: 20151130
  Receipt Date: 20151130
  Transmission Date: 20160305
  Serious: Yes (Other)
  Sender: FDA-Public Use
  Company Number: HU-PFIZER INC-2015405393

PATIENT
  Age: 77 Year
  Sex: Female

DRUGS (1)
  1. CARDURA XL [Suspect]
     Active Substance: DOXAZOSIN MESYLATE

REACTIONS (7)
  - Pharyngeal oedema [Unknown]
  - Hypersensitivity [Unknown]
  - Incontinence [Unknown]
  - Pyrexia [Unknown]
  - Choking [Unknown]
  - Fear of death [Unknown]
  - Cough [Unknown]
